FAERS Safety Report 7459583-X (Version None)
Quarter: 2011Q2

REPORT INFORMATION
  Report Type: 
  Country: None (occurrence: None)
  Receive Date: 20110505
  Receipt Date: 20110421
  Transmission Date: 20111010
  Serious: Yes (Hospitalization)
  Sender: FDA-Public Use
  Company Number: FR-PFIZER INC-2011095998

PATIENT
  Age: 28 Year
  Sex: Male

DRUGS (4)
  1. RISPERIDONE [Suspect]
     Indication: HYPOMANIA
     Dosage: 2 MG, 2X/DAY
     Route: 048
     Dates: start: 20110212, end: 20110219
  2. NICOTINELL [Suspect]
     Indication: SMOKING CESSATION THERAPY
     Dosage: 1 DF, 1X/DAY
     Route: 062
     Dates: start: 20110215
  3. ATARAX [Suspect]
     Dosage: 25 MG, 4X/DAY
     Route: 048
     Dates: start: 20110212
  4. DEPAKOTE [Suspect]
     Indication: HYPOMANIA
     Dosage: 250 MG, 2X/DAY
     Route: 048
     Dates: start: 20110212

REACTIONS (3)
  - URTICARIA [None]
  - GENERALISED OEDEMA [None]
  - PRURITUS GENERALISED [None]
